FAERS Safety Report 23180670 (Version 1)
Quarter: 2023Q4

REPORT INFORMATION
  Report Type: Report from Study
  Country: US (occurrence: US)
  Receive Date: 20231114
  Receipt Date: 20231114
  Transmission Date: 20240110
  Serious: No
  Sender: FDA-Public Use
  Company Number: US-002147023-NVSC2023US239700

PATIENT
  Sex: Female

DRUGS (1)
  1. KESIMPTA [Suspect]
     Active Substance: OFATUMUMAB
     Indication: Product used for unknown indication
     Dosage: UNK
     Route: 065

REACTIONS (7)
  - Visual acuity reduced [Unknown]
  - General physical health deterioration [Unknown]
  - Chills [Unknown]
  - Gait inability [Unknown]
  - Sinusitis [Unknown]
  - Pain [Unknown]
  - Pyrexia [Recovering/Resolving]
